FAERS Safety Report 14641250 (Version 2)
Quarter: 2018Q2

REPORT INFORMATION
  Report Type: Spontaneous
  Country: US (occurrence: US)
  Receive Date: 20180315
  Receipt Date: 20180606
  Transmission Date: 20180711
  Serious: Yes (Congenital Anomaly, Other)
  Sender: FDA-Public Use
  Company Number: PHEH2018US009189

PATIENT
  Sex: Male

DRUGS (1)
  1. ZOFRAN [Suspect]
     Active Substance: ONDANSETRON HYDROCHLORIDE
     Indication: FOETAL EXPOSURE DURING PREGNANCY
     Dosage: MOTHER DOSE: 8 MG PRN
     Route: 064

REACTIONS (8)
  - Atrial septal defect [Unknown]
  - Foetal exposure during pregnancy [Unknown]
  - Injury [Unknown]
  - Ventricular septal defect [Unknown]
  - Heart disease congenital [Unknown]
  - Premature baby [Unknown]
  - Cleft lip [Unknown]
  - Cleft palate [Unknown]

NARRATIVE: CASE EVENT DATE: 20001023
